FAERS Safety Report 24561410 (Version 1)
Quarter: 2024Q4

REPORT INFORMATION
  Report Type: Spontaneous
  Country: US (occurrence: None)
  Receive Date: 20241027
  Receipt Date: 20241027
  Transmission Date: 20250114
  Serious: Yes (Disabling)
  Sender: Public
  Company Number: None

PATIENT
  Age: 35 Year
  Sex: Female
  Weight: 50.4 kg

DRUGS (2)
  1. PROGESTERONE [Suspect]
     Active Substance: PROGESTERONE
     Indication: Thyroid disorder
     Dosage: FREQUENCY : AT BEDTIME;?
     Route: 061
  2. Naltrexone, 3.5mg [Concomitant]

REACTIONS (6)
  - Product label confusion [None]
  - Malaise [None]
  - Asthenia [None]
  - Near death experience [None]
  - Suicidal ideation [None]
  - Psychological trauma [None]

NARRATIVE: CASE EVENT DATE: 20231016
